FAERS Safety Report 7546269-6 (Version None)
Quarter: 2011Q2

REPORT INFORMATION
  Report Type: 
  Country: None (occurrence: None)
  Receive Date: 20110614
  Receipt Date: 20061031
  Transmission Date: 20111010
  Serious: Yes (Other)
  Sender: FDA-Public Use
  Company Number: PHEH2006US06928

PATIENT
  Sex: Male

DRUGS (5)
  1. LORTAB [Concomitant]
     Dosage: UNK
  2. FOLIC ACID [Concomitant]
     Dosage: UNK, UNK
     Dates: start: 20050526, end: 20060519
  3. IBUPROFEN [Concomitant]
     Dosage: UNK
  4. EXJADE [Suspect]
     Indication: BLOOD IRON INCREASED
     Dosage: 2000 MG, QD
     Route: 048
     Dates: start: 20060225, end: 20060519
  5. NAPROXEN [Concomitant]
     Dosage: 500 MG, UNK
     Dates: start: 20060201, end: 20060519

REACTIONS (12)
  - FATIGUE [None]
  - DECREASED APPETITE [None]
  - ABDOMINAL DISTENSION [None]
  - NAUSEA [None]
  - FLUID RETENTION [None]
  - VISUAL IMPAIRMENT [None]
  - MALAISE [None]
  - DYSSTASIA [None]
  - CHOLELITHIASIS [None]
  - RASH PRURITIC [None]
  - DIABETES MELLITUS INADEQUATE CONTROL [None]
  - SKIN INFECTION [None]
